FAERS Safety Report 24966261 (Version 4)
Quarter: 2025Q2

REPORT INFORMATION
  Report Type: Spontaneous
  Country: US (occurrence: US)
  Receive Date: 20250213
  Receipt Date: 20250403
  Transmission Date: 20250717
  Serious: No
  Sender: BIOGEN
  Company Number: US-BIOGEN-2024BI01260763

PATIENT
  Sex: Female

DRUGS (1)
  1. TYSABRI [Suspect]
     Active Substance: NATALIZUMAB
     Indication: Multiple sclerosis
     Route: 050
     Dates: start: 20151009, end: 20240821

REACTIONS (18)
  - Product dose omission issue [Not Recovered/Not Resolved]
  - Musculoskeletal disorder [Not Recovered/Not Resolved]
  - Illness [Not Recovered/Not Resolved]
  - Hypersomnia [Not Recovered/Not Resolved]
  - Multiple sclerosis [Unknown]
  - Tooth loss [Unknown]
  - General physical health deterioration [Unknown]
  - Peroneal nerve palsy [Unknown]
  - Foot fracture [Unknown]
  - Dental caries [Unknown]
  - Neuropathy peripheral [Unknown]
  - Ankle fracture [Recovered/Resolved]
  - Muscle spasticity [Unknown]
  - Balance disorder [Unknown]
  - Fatigue [Unknown]
  - Muscle spasms [Unknown]
  - Urinary incontinence [Unknown]
  - Hepatic enzyme increased [Unknown]
